FAERS Safety Report 8469645-6 (Version None)
Quarter: 2012Q2

REPORT INFORMATION
  Report Type: 
  Country: None (occurrence: None)
  Receive Date: 20120626
  Receipt Date: 20120508
  Transmission Date: 20120825
  Serious: Yes (Hospitalization)
  Sender: FDA-Public Use
  Company Number: PHHY2012DE039125

PATIENT
  Age: 60 Year
  Sex: Male

DRUGS (3)
  1. FLUOROURACIL [Suspect]
     Indication: GASTRIC CANCER
     Dosage: UNK
  2. CISPLATIN [Suspect]
     Indication: GASTRIC CANCER
  3. DOCETAXEL [Suspect]
     Indication: GASTRIC CANCER

REACTIONS (5)
  - AORTIC ANEURYSM [None]
  - ABDOMINAL PAIN [None]
  - BACK PAIN [None]
  - NAUSEA [None]
  - C-REACTIVE PROTEIN INCREASED [None]
